FAERS Safety Report 9560402 (Version 1)
Quarter: 2013Q3

REPORT INFORMATION
  Report Type: Spontaneous
  Country: US (occurrence: None)
  Receive Date: 20130906
  Receipt Date: 20130906
  Transmission Date: 20140515
  Serious: No
  Sender: FDA-Public Use
  Company Number: 163-POMAL-13060343

PATIENT
  Age: 77 Year
  Sex: Female

DRUGS (1)
  1. POMALYST [Suspect]
     Indication: PLASMA CELL MYELOMA
     Dosage: 4 MG, 1 IN 1 D, PO
     Route: 048
     Dates: start: 201304

REACTIONS (2)
  - Feeling jittery [None]
  - Hypotension [None]
